FAERS Safety Report 26086625 (Version 1)
Quarter: 2025Q4

REPORT INFORMATION
  Report Type: Spontaneous
  Country: GB (occurrence: GB)
  Receive Date: 20251125
  Receipt Date: 20251125
  Transmission Date: 20260117
  Serious: Yes (Disabling, Other)
  Sender: CADILA
  Company Number: None

PATIENT
  Age: 88 Year
  Sex: Male

DRUGS (6)
  1. DONEPEZIL HYDROCHLORIDE [Suspect]
     Active Substance: DONEPEZIL HYDROCHLORIDE
     Indication: Dementia Alzheimer^s type
     Dosage: 5 MG ONCE DAILY
  2. NITROGLYCERIN [Concomitant]
     Active Substance: NITROGLYCERIN
  3. ATORVASTATIN [Concomitant]
     Active Substance: ATORVASTATIN
  4. BISOPROLOL [Concomitant]
     Active Substance: BISOPROLOL
  5. CANDESARTAN [Concomitant]
     Active Substance: CANDESARTAN
  6. ASPIRIN [Concomitant]
     Active Substance: ASPIRIN

REACTIONS (4)
  - Paranoia [Recovered/Resolved]
  - Emotional distress [Recovered/Resolved]
  - Delusion [Recovered/Resolved]
  - Aggression [Recovered/Resolved]
